FAERS Safety Report 8316747-0 (Version None)
Quarter: 2012Q2

REPORT INFORMATION
  Report Type: 
  Country: None (occurrence: None)
  Receive Date: 20120425
  Receipt Date: 20120419
  Transmission Date: 20120825
  Serious: Yes (Hospitalization)
  Sender: FDA-Public Use
  Company Number: 2012SP006668

PATIENT
  Age: 25 Year
  Sex: Female
  Weight: 70.3075 kg

DRUGS (1)
  1. NUVARING [Suspect]
     Indication: CONTRACEPTION
     Dates: start: 20040401, end: 20060910

REACTIONS (8)
  - PULMONARY EMBOLISM [None]
  - INJURY [None]
  - ROAD TRAFFIC ACCIDENT [None]
  - NERVE COMPRESSION [None]
  - PREGNANCY [None]
  - APPENDICECTOMY [None]
  - THROMBOSIS [None]
  - MATERNAL EXPOSURE BEFORE PREGNANCY [None]
